FAERS Safety Report 25723616 (Version 2)
Quarter: 2025Q4

REPORT INFORMATION
  Report Type: Report from Study
  Country: GB (occurrence: GB)
  Receive Date: 20250825
  Receipt Date: 20251009
  Transmission Date: 20260118
  Serious: Yes (Hospitalization, Other)
  Sender: AMGEN
  Company Number: GB-Vifor (International) Inc.-VIT-2024-00091

PATIENT
  Age: 52 Year
  Sex: Male

DRUGS (37)
  1. AVACOPAN [Suspect]
     Active Substance: AVACOPAN
     Indication: Anti-neutrophil cytoplasmic antibody positive vasculitis
     Dosage: 30 MG, BID
     Route: 048
     Dates: start: 20230704, end: 20231223
  2. AVACOPAN [Suspect]
     Active Substance: AVACOPAN
     Dosage: 30 MG, BID
     Route: 048
     Dates: start: 20231227
  3. RITUXIMAB [Concomitant]
     Active Substance: RITUXIMAB
     Indication: Anti-neutrophil cytoplasmic antibody positive vasculitis
     Dosage: MORE THAN 5 YEARS
     Route: 065
  4. RITUXIMAB [Concomitant]
     Active Substance: RITUXIMAB
     Indication: Ex vivo gene therapy
     Dosage: 1000 MG, SINGLE
     Route: 040
     Dates: start: 20230221, end: 20230221
  5. RITUXIMAB [Concomitant]
     Active Substance: RITUXIMAB
     Dosage: 1000 MG, SINGLE
     Route: 040
     Dates: start: 20250328, end: 20250328
  6. RITUXIMAB [Concomitant]
     Active Substance: RITUXIMAB
     Dosage: 1000 MG, SINGLE
     Route: 040
     Dates: start: 20250328, end: 20250328
  7. CYCLOPHOSPHAMIDE [Concomitant]
     Active Substance: CYCLOPHOSPHAMIDE
     Indication: Anti-neutrophil cytoplasmic antibody positive vasculitis
     Dosage: NUMBER OF COURSES REPORTED AS 1.
     Route: 042
  8. METHOTREXATE [Concomitant]
     Active Substance: METHOTREXATE
     Indication: Anti-neutrophil cytoplasmic antibody positive vasculitis
     Dosage: TOTAL DURATION OF PRIOR TREATMENT REPORTED AS 0 TO 6 MONTHS
  9. MYCOPHENOLATE MOFETIL [Concomitant]
     Active Substance: MYCOPHENOLATE MOFETIL
     Indication: Anti-neutrophil cytoplasmic antibody positive vasculitis
     Dosage: TOTAL DURATION OF PRIOR TREATMENT WAS REPORTED AS 6 MONTHS TO 1 YEAR
  10. MYCOPHENOLATE MOFETIL [Concomitant]
     Active Substance: MYCOPHENOLATE MOFETIL
     Dosage: TOTAL DURATION OF PRIOR TREATMENT WAS REPORTED AS 6 MONTHS TO 1 YEAR
  11. AZATHIOPRINE [Concomitant]
     Active Substance: AZATHIOPRINE
     Indication: Anti-neutrophil cytoplasmic antibody positive vasculitis
     Dosage: 1.5 G, OD
     Route: 048
     Dates: start: 20170804, end: 20241030
  12. ABATACEPT [Concomitant]
     Active Substance: ABATACEPT
     Indication: Anti-neutrophil cytoplasmic antibody positive vasculitis
     Dosage: TOTAL DURATION OF PRIOR TREATMENT 6 MONTHS TO 1 YEAR
     Route: 065
  13. BENDROFLUMETHIAZIDE [Concomitant]
     Active Substance: BENDROFLUMETHIAZIDE
     Indication: Essential hypertension
     Dosage: 2.5 MG, OD
     Route: 048
     Dates: start: 20200506
  14. AMLODIPINE [Concomitant]
     Active Substance: AMLODIPINE BESYLATE
     Indication: Essential hypertension
     Dosage: 10 MG, OD
     Route: 048
     Dates: start: 20200211
  15. RAMIPRIL [Concomitant]
     Active Substance: RAMIPRIL
     Indication: Essential hypertension
     Dosage: 10 MG, OD
     Route: 048
     Dates: start: 20171201
  16. BISOPROLOL [Concomitant]
     Active Substance: BISOPROLOL
     Indication: Essential hypertension
     Dosage: 5 MG, OD
     Route: 048
     Dates: start: 20170920
  17. COTRIMOXAZOLE [Concomitant]
     Active Substance: SULFAMETHOXAZOLE\TRIMETHOPRIM
     Indication: Prophylaxis
     Dosage: 4.8 G, TIW
     Route: 048
     Dates: start: 20170428
  18. AMITRIPTYLINE [Concomitant]
     Active Substance: AMITRIPTYLINE
     Indication: Anti-neutrophil cytoplasmic antibody positive vasculitis
     Dosage: 25 MG, OD
     Route: 048
     Dates: start: 20140203
  19. MOMETASONE [Concomitant]
     Active Substance: MOMETASONE
     Indication: Anti-neutrophil cytoplasmic antibody positive vasculitis
     Dosage: 50 MICROGRAMS/DOSE. ONGOING. TWO PUFFS INTO EACH NOSTRIL
     Route: 045
     Dates: start: 20120514
  20. BECLOMETHASONE\FORMOTEROL [Concomitant]
     Active Substance: BECLOMETHASONE\FORMOTEROL
     Indication: Anti-neutrophil cytoplasmic antibody positive vasculitis
     Dosage: 100MICROGRAMS + 6MICROGRAMS/ACTUATION INHALER. ONGOING. AS REQUIRED
     Route: 065
     Dates: start: 20120514
  21. BACTROBAN [Concomitant]
     Active Substance: MUPIROCIN CALCIUM
     Indication: Anti-neutrophil cytoplasmic antibody positive vasculitis
     Dosage: APPLY ON AFFECTED AREAS. TWICE DAILY AS REQUIRED.
     Route: 045
     Dates: start: 20100705
  22. PANTOPRAZOLE [Concomitant]
     Active Substance: PANTOPRAZOLE
     Indication: Gastrooesophageal reflux disease
     Dosage: 40 MG, QD
     Route: 048
     Dates: start: 20080513
  23. PREDNISOLONE [Concomitant]
     Active Substance: PREDNISOLONE
     Indication: Anti-neutrophil cytoplasmic antibody positive vasculitis
     Dosage: COMPLETION OF PLANNED COURSE
     Route: 048
     Dates: start: 20230620, end: 202307
  24. PREDNISOLONE [Concomitant]
     Active Substance: PREDNISOLONE
     Dosage: COMPLETION OF PLANNED COURSE
     Route: 048
     Dates: start: 202307, end: 202307
  25. PREDNISOLONE [Concomitant]
     Active Substance: PREDNISOLONE
     Dosage: COMPLETION OF PLANNED COURSE
     Route: 048
     Dates: start: 202307, end: 202309
  26. PREDNISOLONE [Concomitant]
     Active Substance: PREDNISOLONE
     Dosage: COMPLETION OF PLANNED COURSE
     Route: 048
     Dates: start: 202309, end: 20231010
  27. PREDNISOLONE [Concomitant]
     Active Substance: PREDNISOLONE
     Dosage: COMPLETION OF PLANNED COURSE
     Route: 048
     Dates: start: 20231011, end: 202312
  28. PREDNISOLONE [Concomitant]
     Active Substance: PREDNISOLONE
     Dosage: COMPLETION OF PLANNED COURSE
     Route: 048
     Dates: start: 202312, end: 202401
  29. PREDNISOLONE [Concomitant]
     Active Substance: PREDNISOLONE
     Dosage: LACK OF EFFICACY
     Route: 048
     Dates: start: 202401, end: 20240521
  30. PREDNISOLONE [Concomitant]
     Active Substance: PREDNISOLONE
     Dosage: LACK OF EFFICACY
     Route: 048
     Dates: start: 20240521, end: 2024
  31. PREDNISOLONE [Concomitant]
     Active Substance: PREDNISOLONE
     Dosage: 4 MG, OD
     Route: 048
     Dates: start: 2024, end: 20241030
  32. PREDNISOLONE [Concomitant]
     Active Substance: PREDNISOLONE
     Dosage: 3 MG, OD
     Route: 048
     Dates: start: 20241031, end: 2025
  33. PREDNISOLONE [Concomitant]
     Active Substance: PREDNISOLONE
     Dosage: 10 MG, OD
     Route: 048
     Dates: start: 2025, end: 20250307
  34. PREDNISOLONE [Concomitant]
     Active Substance: PREDNISOLONE
     Dosage: 20 MG, OD
     Route: 048
     Dates: start: 20250308, end: 20250314
  35. PREDNISOLONE [Concomitant]
     Active Substance: PREDNISOLONE
     Dosage: 15 MG, OD
     Route: 048
     Dates: start: 20250315, end: 20250321
  36. PREDNISOLONE [Concomitant]
     Active Substance: PREDNISOLONE
     Dosage: 10 MG, OD
     Route: 048
     Dates: start: 20250322, end: 20250326
  37. SOTROVIMAB [Concomitant]
     Active Substance: SOTROVIMAB
     Indication: COVID-19 prophylaxis
     Dosage: 2 G, SINGLE
     Route: 042
     Dates: start: 20230704, end: 20230704

REACTIONS (13)
  - Abdominal pain [Recovered/Resolved]
  - Vasculitis [Recovering/Resolving]
  - Presyncope [Recovered/Resolved]
  - Dyspnoea [Recovered/Resolved]
  - Renal cell carcinoma [Recovered/Resolved]
  - Hypokalaemia [Recovered/Resolved]
  - Myocarditis [Recovering/Resolving]
  - Atrial fibrillation [Recovered/Resolved]
  - Splenic lesion [Recovered/Resolved]
  - COVID-19 [Recovered/Resolved]
  - Chest pain [Recovered/Resolved]
  - Splenic lesion [Recovering/Resolving]
  - Wound infection [Recovered/Resolved]

NARRATIVE: CASE EVENT DATE: 20231217
